FAERS Safety Report 9016731 (Version 5)
Quarter: 2014Q2

REPORT INFORMATION
  Report Type: Spontaneous
  Country: US (occurrence: US)
  Receive Date: 20130116
  Receipt Date: 20140515
  Transmission Date: 20141212
  Serious: No
  Sender: FDA-Public Use
  Company Number: US-009507513-1301USA005322

PATIENT
  Sex: Male
  Weight: 85.26 kg

DRUGS (1)
  1. PROPECIA [Suspect]
     Indication: ANDROGENETIC ALOPECIA
     Dosage: 1 MG, QD
     Route: 048
     Dates: start: 20070922, end: 200808

REACTIONS (19)
  - Immune system disorder [Unknown]
  - Libido decreased [Recovering/Resolving]
  - Sexual dysfunction [Unknown]
  - Adrenal suppression [Recovering/Resolving]
  - Gingival inflammation [Unknown]
  - Haemorrhoids [Unknown]
  - Anxiety [Recovering/Resolving]
  - Mental impairment [Unknown]
  - Amnesia [Unknown]
  - Major depression [Recovering/Resolving]
  - Erectile dysfunction [Not Recovered/Not Resolved]
  - Organic erectile dysfunction [Not Recovered/Not Resolved]
  - Pyrexia [Recovered/Resolved]
  - Micturition urgency [Recovered/Resolved]
  - Weight decreased [Unknown]
  - Hypogonadism [Recovered/Resolved]
  - Headache [Unknown]
  - Toxicity to various agents [Unknown]
  - Pyrexia [Recovered/Resolved]
